FAERS Safety Report 23997828 (Version 1)
Quarter: 2024Q2

REPORT INFORMATION
  Report Type: Report from Study
  Country: CN (occurrence: CN)
  Receive Date: 20240621
  Receipt Date: 20240621
  Transmission Date: 20240716
  Serious: Yes (Death, Other)
  Sender: FDA-Public Use
  Company Number: CN-ROCHE-10000001380

PATIENT

DRUGS (3)
  1. MYCOPHENOLATE MOFETIL [Suspect]
     Active Substance: MYCOPHENOLATE MOFETIL
     Indication: Prophylaxis against graft versus host disease
     Route: 065
  2. METHOTREXATE [Suspect]
     Active Substance: METHOTREXATE
     Indication: Prophylaxis against graft versus host disease
     Route: 065
  3. CYCLOSPORINE [Suspect]
     Active Substance: CYCLOSPORINE
     Indication: Prophylaxis against graft versus host disease
     Route: 065

REACTIONS (8)
  - Cytomegalovirus infection [Unknown]
  - Pneumonia [Fatal]
  - Cystitis haemorrhagic [Unknown]
  - Pneumonia bacterial [Unknown]
  - Central nervous system infection [Fatal]
  - Wernicke^s encephalopathy [Unknown]
  - Off label use [Fatal]
  - Pneumonia fungal [Unknown]
